FAERS Safety Report 20371062 (Version 2)
Quarter: 2022Q1

REPORT INFORMATION
  Report Type: Spontaneous
  Country: ES (occurrence: ES)
  Receive Date: 20220124
  Receipt Date: 20220325
  Transmission Date: 20220424
  Serious: Yes (Other)
  Sender: FDA-Public Use
  Company Number: ES-SA-SAC20220119000842

PATIENT
  Sex: Female
  Weight: 79.7 kg

DRUGS (1)
  1. LANTUS [Suspect]
     Active Substance: INSULIN GLARGINE
     Indication: Type 2 diabetes mellitus
     Route: 058

REACTIONS (12)
  - Memory impairment [Unknown]
  - Renal failure [Unknown]
  - Deafness [Unknown]
  - Diabetes mellitus inadequate control [Recovering/Resolving]
  - Hyperglycaemia [Recovering/Resolving]
  - Decreased appetite [Recovering/Resolving]
  - Eating disorder symptom [Recovering/Resolving]
  - Dizziness [Recovering/Resolving]
  - Proteinuria [Unknown]
  - Hyperglycaemia [Recovering/Resolving]
  - Unevaluable event [Recovered/Resolved]
  - Product storage error [Unknown]
